FAERS Safety Report 17956749 (Version 1)
Quarter: 2020Q2

REPORT INFORMATION
  Report Type: Report from Study
  Country: AU (occurrence: AU)
  Receive Date: 20200629
  Receipt Date: 20200629
  Transmission Date: 20200714
  Serious: Yes (Other)
  Sender: FDA-Public Use
  Company Number: AU-PUMA BIOTECHNOLOGY, LTD.-2020AU003347

PATIENT

DRUGS (1)
  1. NERLYNX [Suspect]
     Active Substance: NERATINIB
     Indication: BREAST CANCER
     Dosage: 240 MG, DAILY
     Route: 048
     Dates: start: 20190809, end: 20200521

REACTIONS (6)
  - Suicidal ideation [Recovered/Resolved]
  - Mood swings [Recovering/Resolving]
  - Stress [Unknown]
  - Tachyphrenia [Unknown]
  - Fatigue [Unknown]
  - Depressed mood [Unknown]

NARRATIVE: CASE EVENT DATE: 20200521
